FAERS Safety Report 22620412 (Version 1)
Quarter: 2023Q2

REPORT INFORMATION
  Report Type: Spontaneous
  Country: US (occurrence: US)
  Receive Date: 20230620
  Receipt Date: 20230620
  Transmission Date: 20230722
  Serious: Yes (Hospitalization)
  Sender: FDA-Public Use
  Company Number: US-BIOGEN-2023BI01210496

PATIENT
  Age: 27 Year
  Sex: Female
  Weight: 91 kg

DRUGS (16)
  1. AMPYRA [Suspect]
     Active Substance: DALFAMPRIDINE
     Indication: Product used for unknown indication
     Dosage: 10 MG, BID
     Route: 048
     Dates: start: 20221018
  2. TYLENOL [Concomitant]
     Active Substance: ACETAMINOPHEN
     Indication: Product used for unknown indication
     Route: 065
  3. NORCO [Concomitant]
     Active Substance: ACETAMINOPHEN\HYDROCODONE BITARTRATE
     Indication: Product used for unknown indication
     Dosage: 5+325MG TABSIG: TAKE 1 TAB BY MOUTH EVERY 12 HOURS
     Route: 048
  4. ZYRTEC [Concomitant]
     Active Substance: CETIRIZINE HYDROCHLORIDE
     Indication: Multiple allergies
     Dosage: AS NEEDED FOR ALLERGIES
     Route: 048
  5. colecalciferol and vitamin d3 [Concomitant]
     Indication: Product used for unknown indication
     Dosage: 8,000 UNITS BY MOUTH EVERY 7 DAYS
     Route: 048
  6. LYRICA [Concomitant]
     Active Substance: PREGABALIN
     Indication: Product used for unknown indication
     Dosage: TAKE 100 MG BY MOUTH IN THE MORNING AND 100MG IN THE EVENING AND 100MG BEFORE BED TIME
     Route: 048
  7. BACTRIM DS [Concomitant]
     Active Substance: SULFAMETHOXAZOLE\TRIMETHOPRIM
     Indication: Product used for unknown indication
     Dosage: 1 DOSAGE FORM, 3X/WK
     Route: 048
     Dates: start: 20221107
  8. ALBUTEROL [Concomitant]
     Active Substance: ALBUTEROL
     Indication: Wheezing
     Dosage: INHALE 2 PUFFS BY MOUTH EVERY 6 HOURS AS NEEDED FOR WHEEZING
  9. ALBUTEROL [Concomitant]
     Active Substance: ALBUTEROL
     Indication: Dyspnoea
  10. ALBUTEROL [Concomitant]
     Active Substance: ALBUTEROL
     Indication: Cough
  11. VITAMIN B12 [Concomitant]
     Active Substance: CYANOCOBALAMIN
     Indication: Product used for unknown indication
     Route: 048
  12. VOLTAREN [Concomitant]
     Active Substance: DICLOFENAC SODIUM
     Indication: Pain
     Dosage: 3 DOSAGE FORM, QD
     Route: 065
  13. VITAMIN D2 [Concomitant]
     Active Substance: ERGOCALCIFEROL
     Indication: Product used for unknown indication
     Dosage: 50000 INTERNATIONAL UNIT, WEEKLY
     Route: 048
     Dates: start: 20221007
  14. XYLOCAINE [Concomitant]
     Active Substance: LIDOCAINE HYDROCHLORIDE
     Indication: Multiple sclerosis
     Dosage: UNK
     Route: 050
     Dates: start: 20220701
  15. ROXICODONE [Concomitant]
     Active Substance: OXYCODONE HYDROCHLORIDE
     Indication: Pain
     Route: 048
     Dates: start: 20220803
  16. IMITREX [Concomitant]
     Active Substance: SUMATRIPTAN SUCCINATE
     Indication: Migraine
     Route: 048
     Dates: start: 20220630

REACTIONS (7)
  - Hypertension [Unknown]
  - Anuria [Unknown]
  - Device related infection [Unknown]
  - Multiple sclerosis relapse [Unknown]
  - Paraparesis [Unknown]
  - Central nervous system lesion [Unknown]
  - Myelomalacia [Unknown]

NARRATIVE: CASE EVENT DATE: 20221001
